FAERS Safety Report 10456485 (Version 1)
Quarter: 2014Q3

REPORT INFORMATION
  Report Type: Spontaneous
  Country: US (occurrence: None)
  Receive Date: 20140822
  Receipt Date: 20140822
  Transmission Date: 20150326
  Serious: Yes (Hospitalization)
  Sender: FDA-Public Use
  Company Number: 2014SUN01147

PATIENT
  Age: 50 Year
  Sex: Male
  Weight: 93 kg

DRUGS (12)
  1. BACTRIM DS [Suspect]
     Active Substance: SULFAMETHOXAZOLE\TRIMETHOPRIM
     Indication: PROPHYLAXIS
     Route: 048
     Dates: start: 20131028, end: 20140326
  2. ASKP1240 [Suspect]
     Active Substance: INVESTIGATIONAL PRODUCT
     Indication: RENAL TRANSPLANT
     Route: 042
     Dates: start: 20131023
  3. TACROLIMUS. [Suspect]
     Active Substance: TACROLIMUS
     Indication: RENAL TRANSPLANT
     Route: 048
     Dates: start: 20131024
  4. INSULIN ASPART (INSULIN ASPART) [Concomitant]
     Active Substance: INSULIN ASPART
  5. BASILIXIMAB [Suspect]
     Active Substance: BASILIXIMAB
     Indication: RENAL TRANSPLANT
     Route: 042
     Dates: start: 20131023, end: 20131027
  6. DELTASONE (PREDNISONE) [Concomitant]
  7. FLORINEF (FLUDROCORTISONE ACETATE) [Concomitant]
  8. INSULIN GLARGINE (INSULIN GLARGINE) [Concomitant]
     Active Substance: INSULIN GLARGINE
  9. VALCYTE [Suspect]
     Active Substance: VALGANCICLOVIR HYDROCHLORIDE
     Indication: PROPHYLAXIS
     Route: 048
     Dates: start: 20131126, end: 20140326
  10. SARNA (CAMPHOR, MENTHOL, PHENOL) LOTION [Concomitant]
  11. ASPIRIN (ACETYLSALICYLIC ACID) [Concomitant]
     Active Substance: ASPIRIN
  12. PRILOSEC (OMEPRAZOLE) [Concomitant]
     Active Substance: OMEPRAZOLE MAGNESIUM

REACTIONS (4)
  - Leukopenia [None]
  - Pyrexia [None]
  - Headache [None]
  - Asthenia [None]

NARRATIVE: CASE EVENT DATE: 20140321
